FAERS Safety Report 8593439-4 (Version None)
Quarter: 2012Q3

REPORT INFORMATION
  Report Type: 
  Country: None (occurrence: None)
  Receive Date: 20120814
  Receipt Date: 20120731
  Transmission Date: 20120928
  Serious: Yes (Hospitalization)
  Sender: FDA-Public Use
  Company Number: JP-009507513-1208JPN000349

PATIENT

DRUGS (12)
  1. TELAVIC [Suspect]
     Route: 048
     Dates: start: 20120508
  2. PAXIL [Concomitant]
     Route: 048
  3. REBETOL [Suspect]
     Route: 048
     Dates: start: 20120508
  4. AMLODIPINE BESYLATE [Concomitant]
     Route: 048
  5. ZOLPIDEM [Concomitant]
     Route: 048
  6. REBETOL [Suspect]
     Route: 048
     Dates: start: 20120710
  7. REBETOL [Suspect]
     Route: 048
  8. AMLODIPINE BESYLATE [Concomitant]
     Route: 048
  9. OLMESARTAN MEDOXOMIL [Concomitant]
     Route: 048
  10. OLMESARTAN MEDOXOMIL [Concomitant]
     Route: 048
  11. PAXIL [Concomitant]
     Route: 048
  12. ZOLPIDEM [Concomitant]
     Route: 048

REACTIONS (1)
  - URINARY TRACT INFECTION [None]
